FAERS Safety Report 7288285-8 (Version None)
Quarter: 2011Q1

REPORT INFORMATION
  Report Type: 
  Country: None (occurrence: None)
  Receive Date: 20110208
  Receipt Date: 20110208
  Transmission Date: 20110831
  Serious: No
  Sender: FDA-Public Use
  Company Number: None

PATIENT
  Age: 24 Year
  Sex: Female
  Weight: 65.9 kg

DRUGS (1)
  1. HUMATE-P [Suspect]
     Indication: POSTPARTUM STATE
     Dosage: 2600 UNITS PER DOSE DAILY X 12 IV BOLUS
     Route: 040
     Dates: start: 20110131, end: 20110211

REACTIONS (4)
  - PARAESTHESIA [None]
  - HYPOAESTHESIA [None]
  - DIZZINESS [None]
  - HEADACHE [None]
